FAERS Safety Report 13744333 (Version 3)
Quarter: 2017Q3

REPORT INFORMATION
  Report Type: Report from Study
  Country: CO (occurrence: CO)
  Receive Date: 20170712
  Receipt Date: 20170811
  Transmission Date: 20171127
  Serious: Yes (Other)
  Sender: FDA-Public Use
  Company Number: PHHY2017CO097273

PATIENT
  Age: 10 Year
  Sex: Male
  Weight: 20 kg

DRUGS (2)
  1. OMNITROPE [Suspect]
     Active Substance: SOMATROPIN
     Indication: GROWTH HORMONE DEFICIENCY
     Dosage: 0.8 MG, UNK
     Route: 058
     Dates: start: 201405
  2. OMNITROPE [Suspect]
     Active Substance: SOMATROPIN
     Indication: PITUITARY HYPOPLASIA
     Dosage: 10 MG, QD
     Route: 058
     Dates: start: 20140604, end: 20170607

REACTIONS (5)
  - Injury [Unknown]
  - Fall [Unknown]
  - Femur fracture [Unknown]
  - Arthralgia [Not Recovered/Not Resolved]
  - Osteonecrosis [Not Recovered/Not Resolved]

NARRATIVE: CASE EVENT DATE: 201701
